FAERS Safety Report 6538614-5 (Version None)
Quarter: 2010Q1

REPORT INFORMATION
  Report Type: 
  Country: None (occurrence: None)
  Receive Date: 20100113
  Receipt Date: 20100113
  Transmission Date: 20100710
  Serious: Yes (Hospitalization)
  Sender: FDA-Public Use
  Company Number: None

PATIENT
  Age: 39 Year
  Sex: Female
  Weight: 66.6788 kg

DRUGS (1)
  1. CARAFATE [Suspect]
     Indication: PHARYNGEAL DISORDER
     Dosage: 2 TEASPOONS BEFORE MEALS/BED PO
     Route: 048
     Dates: start: 20091228, end: 20091231

REACTIONS (13)
  - CHOKING SENSATION [None]
  - DRUG HYPERSENSITIVITY [None]
  - DYSPHONIA [None]
  - EMOTIONAL DISORDER [None]
  - FEAR [None]
  - MENTAL DISORDER [None]
  - OESOPHAGEAL DISORDER [None]
  - OESOPHAGEAL SPASM [None]
  - OROPHARYNGEAL PAIN [None]
  - PHARYNGEAL INFLAMMATION [None]
  - PHARYNGEAL OEDEMA [None]
  - SPEECH DISORDER [None]
  - WEIGHT DECREASED [None]
